FAERS Safety Report 8433537-9 (Version None)
Quarter: 2012Q2

REPORT INFORMATION
  Report Type: 
  Country: None (occurrence: None)
  Receive Date: 20120613
  Receipt Date: 20120604
  Transmission Date: 20120825
  Serious: Yes (Life-Threatening, Hospitalization)
  Sender: FDA-Public Use
  Company Number: JP-SANOFI-AVENTIS-2011SA077436

PATIENT
  Age: 57 Year
  Sex: Male
  Weight: 69.8 kg

DRUGS (11)
  1. DOCETAXEL [Suspect]
     Route: 041
     Dates: start: 20111025
  2. DEPAKENE [Concomitant]
     Route: 048
     Dates: start: 20110924
  3. LANSOPRAZOLE [Concomitant]
     Route: 048
     Dates: start: 20110630
  4. DOCETAXEL [Suspect]
     Route: 041
     Dates: start: 20111025
  5. LOXOPROFEN [Concomitant]
     Indication: PAIN MANAGEMENT
     Route: 048
     Dates: start: 20110622
  6. OXYCONTIN [Concomitant]
     Indication: PAIN MANAGEMENT
     Route: 048
     Dates: start: 20110630
  7. REBAMIPIDE [Concomitant]
     Route: 048
     Dates: start: 20110627
  8. DOCETAXEL [Suspect]
     Indication: CHEMOTHERAPY
     Dosage: STRENGTH: 80MG/4ML
     Route: 041
     Dates: start: 20111101
  9. CLONAZEPAM [Concomitant]
     Route: 048
     Dates: start: 20110924
  10. DOCETAXEL [Suspect]
     Dosage: STRENGTH: 80MG/4ML
     Route: 041
     Dates: start: 20111101
  11. ACETAMINOPHEN [Concomitant]
     Indication: PAIN MANAGEMENT
     Route: 048
     Dates: start: 20110630

REACTIONS (3)
  - LUNG DISORDER [None]
  - DYSPNOEA [None]
  - ALTERED STATE OF CONSCIOUSNESS [None]
